FAERS Safety Report 9596975 (Version 1)
Quarter: 2013Q4

REPORT INFORMATION
  Report Type: Spontaneous
  Country: US (occurrence: US)
  Receive Date: 20131004
  Receipt Date: 20131004
  Transmission Date: 20140711
  Serious: Yes (Hospitalization, Other)
  Sender: FDA-Public Use
  Company Number: US-ELI_LILLY_AND_COMPANY-US201309008786

PATIENT
  Sex: Female

DRUGS (3)
  1. INSULIN HUMAN [Suspect]
     Indication: DIABETES MELLITUS
  2. INSULIN HUMAN [Suspect]
  3. LANTUS [Concomitant]

REACTIONS (2)
  - Blood pressure increased [Unknown]
  - Blood glucose abnormal [Unknown]
